FAERS Safety Report 6779591-1 (Version None)
Quarter: 2010Q2

REPORT INFORMATION
  Report Type: 
  Country: None (occurrence: None)
  Receive Date: 20100618
  Receipt Date: 20100608
  Transmission Date: 20101027
  Serious: Yes (Hospitalization)
  Sender: FDA-Public Use
  Company Number: A0865627A

PATIENT
  Sex: Female
  Weight: 71 kg

DRUGS (3)
  1. SERETIDE [Suspect]
     Dosage: 1PUFF TWICE PER DAY
     Route: 055
     Dates: start: 20060101
  2. AEROLIN [Concomitant]
     Dosage: 1PUFF SIX TIMES PER DAY
     Route: 055
     Dates: start: 20060101
  3. FLUIR [Concomitant]
     Dosage: 1CAP THREE TIMES PER DAY
     Dates: start: 20100418

REACTIONS (4)
  - ASTHMA [None]
  - PAIN IN EXTREMITY [None]
  - PULMONARY EMBOLISM [None]
  - THROMBOSIS [None]
